FAERS Safety Report 10993586 (Version 1)
Quarter: 2015Q1

REPORT INFORMATION
  Report Type: Spontaneous
  Country: US (occurrence: None)
  Receive Date: 20150331
  Receipt Date: 20150331
  Transmission Date: 20150721
  Serious: Yes (Other)
  Sender: FDA-Public Use
  Company Number: PHEH2014US009284

PATIENT
  Age: 61 Year
  Sex: Male

DRUGS (1)
  1. TASIGNA [Suspect]
     Active Substance: NILOTINIB
     Indication: CHRONIC MYELOID LEUKAEMIA
     Route: 048
     Dates: start: 20140201, end: 20140402

REACTIONS (4)
  - Hepatic enzyme increased [None]
  - Gastrointestinal disorder [None]
  - Rash [None]
  - Pancreatitis [None]

NARRATIVE: CASE EVENT DATE: 20140302
